FAERS Safety Report 17577935 (Version 3)
Quarter: 2020Q2

REPORT INFORMATION
  Report Type: Spontaneous
  Country: US (occurrence: US)
  Receive Date: 20200324
  Receipt Date: 20200625
  Transmission Date: 20200713
  Serious: No
  Sender: FDA-Public Use
  Company Number: NVSC2020US078030

PATIENT
  Sex: Female

DRUGS (4)
  1. TAFINLAR [Suspect]
     Active Substance: DABRAFENIB MESYLATE
     Indication: ILL-DEFINED DISORDER
     Dosage: 150 MG, Q12H
     Route: 048
     Dates: start: 20200130
  2. TAFINLAR [Suspect]
     Active Substance: DABRAFENIB MESYLATE
     Dosage: 2 DF, Q12H (100 MG)
     Route: 048
  3. MEKINIST [Suspect]
     Active Substance: TRAMETINIB DIMETHYL SULFOXIDE
     Dosage: 3 MG, QD
     Route: 048
  4. MEKINIST [Suspect]
     Active Substance: TRAMETINIB DIMETHYL SULFOXIDE
     Indication: ILL-DEFINED DISORDER
     Dosage: 2 MG, QD
     Route: 048
     Dates: start: 20200130

REACTIONS (3)
  - Visual impairment [Unknown]
  - Rash [Recovering/Resolving]
  - Product use in unapproved indication [Unknown]
